FAERS Safety Report 4812088-4 (Version None)
Quarter: 2005Q4

REPORT INFORMATION
  Report Type: 
  Country: None (occurrence: None)
  Receive Date: 20051028
  Receipt Date: 20010920
  Transmission Date: 20060501
  Serious: No
  Sender: FDA-Public Use
  Company Number: US-GLAXOSMITHKLINE-A0162210A

PATIENT
  Age: 71 Year
  Sex: Male
  Weight: 113.6 kg

DRUGS (2)
  1. ADVAIR DISKUS 100/50 [Suspect]
     Dosage: 1PUFF TWICE PER DAY
     Route: 055
     Dates: start: 20010701
  2. ALBUTEROL [Concomitant]

REACTIONS (4)
  - DYSPNOEA [None]
  - EPISTAXIS [None]
  - PHARYNGOLARYNGEAL PAIN [None]
  - SHOULDER PAIN [None]
